FAERS Safety Report 22160941 (Version 1)
Quarter: 2023Q1

REPORT INFORMATION
  Report Type: Spontaneous
  Country: US (occurrence: None)
  Receive Date: 20230330
  Receipt Date: 20230330
  Transmission Date: 20230417
  Serious: Yes (Hospitalization)
  Sender: FDA-Public Use
  Company Number: None

PATIENT
  Sex: Male

DRUGS (3)
  1. ONDANSETRON HYDROCHLORIDE [Suspect]
     Active Substance: ONDANSETRON HYDROCHLORIDE
     Indication: Product used for unknown indication
     Dosage: OTHER FREQUENCY : TID PRN;?
     Route: 048
     Dates: start: 202303
  2. SORAFENIB [Suspect]
     Active Substance: SORAFENIB
  3. NIVESTYM [Suspect]
     Active Substance: FILGRASTIM-AAFI

REACTIONS (1)
  - Ammonia increased [None]
